FAERS Safety Report 6641004-8 (Version None)
Quarter: 2010Q1

REPORT INFORMATION
  Report Type: 
  Country: None (occurrence: None)
  Receive Date: 20100318
  Receipt Date: 20100308
  Transmission Date: 20100710
  Serious: Yes (Other)
  Sender: FDA-Public Use
  Company Number: B0638142A

PATIENT
  Sex: Female

DRUGS (6)
  1. ZOPHREN [Suspect]
     Indication: PREMEDICATION
     Route: 042
     Dates: start: 20090302, end: 20090616
  2. PACLITAXEL [Suspect]
     Dosage: 280MG CYCLIC
     Route: 042
     Dates: start: 20090302, end: 20090616
  3. CARBOPLATIN [Suspect]
     Dosage: 620MG CYCLIC
     Route: 042
     Dates: start: 20090302, end: 20090616
  4. POLARAMINE [Suspect]
     Indication: PREMEDICATION
     Route: 042
     Dates: start: 20090302, end: 20090616
  5. METHYLPREDNISOLONE [Suspect]
     Indication: PREMEDICATION
     Dosage: 120MG CYCLIC
     Route: 042
     Dates: start: 20090302, end: 20090616
  6. RANIPLEX [Suspect]
     Indication: PREMEDICATION
     Route: 042
     Dates: start: 20090302, end: 20090616

REACTIONS (2)
  - HAIR DISORDER [None]
  - HIRSUTISM [None]
